FAERS Safety Report 18512697 (Version 1)
Quarter: 2020Q4

REPORT INFORMATION
  Report Type: Report from Study
  Country: LB (occurrence: LB)
  Receive Date: 20201117
  Receipt Date: 20201117
  Transmission Date: 20210114
  Serious: Yes (Hospitalization, Other)
  Sender: FDA-Public Use
  Company Number: LB-TAKEDA-2020TUS039721

PATIENT
  Sex: Female

DRUGS (1)
  1. VEDOLIZUMAB [Suspect]
     Active Substance: VEDOLIZUMAB
     Indication: COLITIS ULCERATIVE
     Dosage: 300 MILLIGRAM
     Route: 042
     Dates: start: 20200916, end: 20200930

REACTIONS (6)
  - Gastrointestinal haemorrhage [Unknown]
  - Tachycardia [Unknown]
  - Vertigo [Unknown]
  - Pain [Unknown]
  - Drug ineffective [Unknown]
  - Asthenia [Unknown]
